FAERS Safety Report 24602612 (Version 1)
Quarter: 2024Q4

REPORT INFORMATION
  Report Type: Spontaneous
  Country: SE (occurrence: SE)
  Receive Date: 20241111
  Receipt Date: 20241111
  Transmission Date: 20250115
  Serious: Yes (Other)
  Sender: TEVA
  Company Number: None

PATIENT
  Age: 33 Year
  Sex: Female

DRUGS (4)
  1. LAMOTRIGINE [Suspect]
     Active Substance: LAMOTRIGINE
     Indication: Bipolar II disorder
     Dosage: 2 TABLETS AT NIGHT, LAMOTRIGINE ACTAVIS
     Route: 065
  2. UREA [Concomitant]
     Active Substance: UREA
     Indication: Product used for unknown indication
     Dosage: 1 APPLICATION 2 TIMES DAILY
     Route: 065
     Dates: start: 20221220
  3. ATARAX [Concomitant]
     Active Substance: HYDROXYZINE HYDROCHLORIDE
     Indication: Product used for unknown indication
     Dosage: 25 MG, 1 TABLET FOR ITCHING ASSOCIATED WITH ANXIETY ETC
     Route: 065
  4. OXAZEPAM [Concomitant]
     Active Substance: OXAZEPAM
     Indication: Product used for unknown indication
     Dosage: 5 MG, 1 TABLET VB, MAXIMUM 3 TABLETS PER DAY
     Route: 065

REACTIONS (6)
  - Fatigue [Unknown]
  - Memory impairment [Recovered/Resolved with Sequelae]
  - Meningitis [Recovered/Resolved with Sequelae]
  - Nausea [Unknown]
  - Headache [Recovered/Resolved with Sequelae]
  - Feeling abnormal [Unknown]
